FAERS Safety Report 6377226-3 (Version None)
Quarter: 2009Q3

REPORT INFORMATION
  Report Type: 
  Country: None (occurrence: None)
  Receive Date: 20090925
  Receipt Date: 20090915
  Transmission Date: 20100115
  Serious: Yes (Hospitalization)
  Sender: FDA-Public Use
  Company Number: A0808743A

PATIENT
  Age: 51 Year
  Sex: Female

DRUGS (1)
  1. AVANDIA [Suspect]
     Dosage: 4MG TWICE PER DAY
     Route: 065
     Dates: start: 20040601, end: 20070501

REACTIONS (3)
  - ANGINA PECTORIS [None]
  - HYPERLIPIDAEMIA [None]
  - MYOCARDIAL ISCHAEMIA [None]
